FAERS Safety Report 7374576 (Version 3)
Quarter: 2013Q2

REPORT INFORMATION
  Report Type: Spontaneous
  Country: US (occurrence: US)
  Receive Date: 20100503
  Receipt Date: 20130425
  Transmission Date: 20140414
  Serious: No
  Sender: FDA-Public Use
  Company Number: US-ASTRAZENECA-2009UW17349

PATIENT
  Age: 85 Year
  Sex: Male
  Weight: 108.9 kg

DRUGS (15)
  1. NEXIUM [Suspect]
     Indication: GASTROOESOPHAGEAL REFLUX DISEASE
     Route: 048
  2. NEXIUM [Suspect]
     Indication: GASTROOESOPHAGEAL REFLUX DISEASE
     Route: 048
  3. NEXIUM [Suspect]
     Indication: GASTROOESOPHAGEAL REFLUX DISEASE
     Route: 048
  4. NEXIUM [Suspect]
     Indication: GASTROOESOPHAGEAL REFLUX DISEASE
     Route: 048
  5. NEXIUM [Suspect]
     Indication: GASTROOESOPHAGEAL REFLUX DISEASE
     Route: 048
  6. NEXIUM [Suspect]
     Indication: GASTROOESOPHAGEAL REFLUX DISEASE
     Route: 048
  7. NEXIUM [Suspect]
     Indication: GASTROOESOPHAGEAL REFLUX DISEASE
     Route: 048
     Dates: start: 201204
  8. NEXIUM [Suspect]
     Indication: GASTROOESOPHAGEAL REFLUX DISEASE
     Route: 048
     Dates: start: 201204
  9. COUMADIN [Concomitant]
     Indication: CEREBROVASCULAR ACCIDENT
  10. AMLODIPINE [Concomitant]
  11. VITAMIN B [Concomitant]
  12. VITAMIN E [Concomitant]
  13. DIGITALIS [Concomitant]
  14. AMELAPENE [Concomitant]
     Indication: HYPERTENSION
  15. DIJOXEN [Concomitant]

REACTIONS (9)
  - Amnesia [Unknown]
  - Back pain [Unknown]
  - Oesophageal pain [Unknown]
  - Oesophageal spasm [Unknown]
  - Bone loss [Unknown]
  - Arthralgia [Unknown]
  - Constipation [Unknown]
  - Drug dose omission [Unknown]
  - Drug ineffective [Unknown]
